FAERS Safety Report 15907089 (Version 2)
Quarter: 2019Q2

REPORT INFORMATION
  Report Type: Spontaneous
  Country: US (occurrence: US)
  Receive Date: 20190204
  Receipt Date: 20190502
  Transmission Date: 20190711
  Serious: No
  Sender: FDA-Public Use
  Company Number: US-PFIZER INC-2019051269

PATIENT
  Age: 47 Year
  Sex: Female

DRUGS (2)
  1. IBRANCE [Suspect]
     Active Substance: PALBOCICLIB
     Dosage: 75 MG, CYCLIC (1 CAPSULE DAILY ON DAYS 1-21, THEN 7 DAYS OFF)
     Route: 048
     Dates: start: 20180101
  2. IBRANCE [Suspect]
     Active Substance: PALBOCICLIB
     Dosage: UNK (HIGHER DOSE)

REACTIONS (3)
  - Full blood count decreased [Recovered/Resolved]
  - Fatigue [Unknown]
  - Bone pain [Recovering/Resolving]
